FAERS Safety Report 24853325 (Version 1)
Quarter: 2025Q1

REPORT INFORMATION
  Report Type: Spontaneous
  Country: GB (occurrence: GB)
  Receive Date: 20250117
  Receipt Date: 20250117
  Transmission Date: 20250409
  Serious: Yes (Life-Threatening, Disabling, Other)
  Sender: ALKEM
  Company Number: None

PATIENT
  Age: 24 Year
  Sex: Male
  Weight: 93 kg

DRUGS (2)
  1. ARIPIPRAZOLE [Suspect]
     Active Substance: ARIPIPRAZOLE
     Indication: Parkinsonism
     Route: 065
     Dates: start: 20180419
  2. PROCYCLIDINE [Concomitant]
     Active Substance: PROCYCLIDINE
     Indication: Parkinsonism
     Route: 065

REACTIONS (15)
  - Amnesia [Not Recovered/Not Resolved]
  - Amnesia [Not Recovered/Not Resolved]
  - Infertility male [Not Recovered/Not Resolved]
  - Parkinsonian gait [Not Recovered/Not Resolved]
  - Blood testosterone decreased [Not Recovered/Not Resolved]
  - Blood follicle stimulating hormone decreased [Not Recovered/Not Resolved]
  - Injection site rash [Recovering/Resolving]
  - Parkinsonism [Not Recovered/Not Resolved]
  - Coordination abnormal [Not Recovered/Not Resolved]
  - Confusional state [Not Recovered/Not Resolved]
  - Hyperprolactinaemia [Not Recovered/Not Resolved]
  - Vomiting [Not Recovered/Not Resolved]
  - Disturbance in attention [Not Recovered/Not Resolved]
  - Agitation [Not Recovered/Not Resolved]
  - Weight increased [Not Recovered/Not Resolved]

NARRATIVE: CASE EVENT DATE: 20190120
